FAERS Safety Report 10487857 (Version 1)
Quarter: 2014Q4

REPORT INFORMATION
  Report Type: Spontaneous
  Country: DE (occurrence: DE)
  Receive Date: 20141001
  Receipt Date: 20141001
  Transmission Date: 20150528
  Serious: Yes (Hospitalization)
  Sender: FDA-Public Use
  Company Number: DE-TEVA-512341GER

PATIENT
  Age: 63 Year
  Sex: Female
  Weight: 72 kg

DRUGS (5)
  1. RAMIPRIL. [Suspect]
     Active Substance: RAMIPRIL
     Dosage: 2.5 MILLIGRAM DAILY; 2.5MG IN THE MORNING
     Route: 048
     Dates: start: 2008
  2. MEGA GREEN TEA EXTRACT [Interacting]
     Active Substance: DIETARY SUPPLEMENT
     Dosage: 725 MILLIGRAM DAILY; 725MG, 1 CAPSULE/DAY, DAILY AFTER LUNCH
     Route: 048
     Dates: start: 20101221
  3. ANASTROZOLE. [Interacting]
     Active Substance: ANASTROZOLE
     Indication: BREAST CANCER
     Dosage: 1 MILLIGRAM DAILY; 1MG IN THE MORNING
     Route: 048
     Dates: start: 2006
  4. COLECALCIFEROL [Concomitant]
     Active Substance: CHOLECALCIFEROL
     Route: 048
     Dates: start: 201002
  5. OXYBUTYNIN [Interacting]
     Active Substance: OXYBUTYNIN
     Dosage: 5 MILLIGRAM DAILY; 5MG IN THE MORNING, SINCE 15Y
     Route: 048
     Dates: start: 2009

REACTIONS (2)
  - Hepatitis acute [Recovered/Resolved]
  - Drug interaction [Recovered/Resolved]
